FAERS Safety Report 12803044 (Version 1)
Quarter: 2016Q4

REPORT INFORMATION
  Report Type: Spontaneous
  Country: US (occurrence: US)
  Receive Date: 20161001
  Receipt Date: 20161001
  Transmission Date: 20170207
  Serious: Yes (Other)
  Sender: FDA-Public Use
  Company Number: None

PATIENT
  Age: 8 Month
  Sex: Male
  Weight: 10.35 kg

DRUGS (4)
  1. MOMMY^S BLISS GRIPE WATER [Concomitant]
  2. BABY TEETHING (HYLAND HOMEOPATHIC) [Suspect]
     Active Substance: HOMEOPATHICS
     Indication: TEETHING
     Route: 048
     Dates: start: 20160510, end: 20161001
  3. MOTRIN [Concomitant]
     Active Substance: IBUPROFEN
  4. COLIC CALM [Concomitant]

REACTIONS (3)
  - Constipation [None]
  - Abdominal pain [None]
  - Rectal haemorrhage [None]

NARRATIVE: CASE EVENT DATE: 20160919
